FAERS Safety Report 23063106 (Version 1)
Quarter: 2023Q4

REPORT INFORMATION
  Report Type: Spontaneous
  Country: FR (occurrence: FR)
  Receive Date: 20231013
  Receipt Date: 20231013
  Transmission Date: 20240109
  Serious: Yes (Other)
  Sender: FDA-Public Use
  Company Number: None

PATIENT
  Age: 58 Year
  Sex: Female
  Weight: 66 kg

DRUGS (6)
  1. DEFERASIROX [Suspect]
     Active Substance: DEFERASIROX
     Indication: Iron overload
     Dates: start: 2018
  2. ESOMEPRAZOLE [Suspect]
     Active Substance: ESOMEPRAZOLE
     Indication: Gastrooesophageal reflux disease
  3. DESFERAL [Suspect]
     Active Substance: DEFEROXAMINE MESYLATE
     Indication: Iron overload
     Dosage: 3.5 G 3X/WEEK
     Dates: start: 2014
  4. HERCEPTIN [Suspect]
     Active Substance: TRASTUZUMAB
     Indication: Breast cancer metastatic
     Dosage: FORM STRENGTH : 600 MG/5 ML
     Dates: start: 20030527
  5. ACLASTA [Suspect]
     Active Substance: ZOLEDRONIC ACID
     Indication: Osteoporosis
     Dates: start: 202010
  6. ACLASTA [Suspect]
     Active Substance: ZOLEDRONIC ACID
     Dosage: DURATION : 1 DAY
     Dates: start: 20230524, end: 20230524

REACTIONS (1)
  - Coombs negative haemolytic anaemia [Recovering/Resolving]

NARRATIVE: CASE EVENT DATE: 20230616
